FAERS Safety Report 6342238-2 (Version None)
Quarter: 2009Q3

REPORT INFORMATION
  Report Type: 
  Country: None (occurrence: None)
  Receive Date: 20090903
  Receipt Date: 20090903
  Transmission Date: 20100115
  Serious: Yes (Other)
  Sender: FDA-Public Use
  Company Number: None

PATIENT
  Sex: Male

DRUGS (2)
  1. VYVANSE [Suspect]
     Indication: ATTENTION DEFICIT/HYPERACTIVITY DISORDER
     Dosage: VYVANSE 20 MG ORAL
     Route: 048
     Dates: start: 20090105, end: 20090416
  2. DIPHENHYDRAMINE HCL [Concomitant]

REACTIONS (6)
  - AGITATION [None]
  - ATTENTION DEFICIT/HYPERACTIVITY DISORDER [None]
  - CONDITION AGGRAVATED [None]
  - HEADACHE [None]
  - INITIAL INSOMNIA [None]
  - PARANOIA [None]
